FAERS Safety Report 15242203 (Version 1)
Quarter: 2018Q3

REPORT INFORMATION
  Report Type: Report from Study
  Country: None (occurrence: CA)
  Receive Date: 20180806
  Receipt Date: 20180806
  Transmission Date: 20181010
  Serious: Yes (Other)
  Sender: FDA-Public Use
  Company Number: CA-ABBVIE-18K-028-2219236-00

PATIENT
  Age: 35 Year
  Sex: Male

DRUGS (1)
  1. HUMIRA [Suspect]
     Active Substance: ADALIMUMAB
     Indication: CROHN^S DISEASE
     Route: 058
     Dates: start: 20120229

REACTIONS (20)
  - Sacroiliitis [Not Recovered/Not Resolved]
  - C-reactive protein increased [Unknown]
  - Therapeutic response shortened [Not Recovered/Not Resolved]
  - Abdominal distension [Not Recovered/Not Resolved]
  - Gastrointestinal anastomotic stenosis [Not Recovered/Not Resolved]
  - Peritoneal fluid analysis abnormal [Unknown]
  - Faecal calprotectin abnormal [Unknown]
  - Faeces soft [Not Recovered/Not Resolved]
  - Crohn^s disease [Unknown]
  - Fatigue [Not Recovered/Not Resolved]
  - Gastrointestinal disorder [Unknown]
  - Pulmonary fibrosis [Unknown]
  - Small intestinal stenosis [Unknown]
  - Non-alcoholic fatty liver [Not Recovered/Not Resolved]
  - Transaminases increased [Not Recovered/Not Resolved]
  - Gastroenteritis [Unknown]
  - Atelectasis [Unknown]
  - Non-alcoholic steatohepatitis [Unknown]
  - Intestinal stenosis [Unknown]
  - Hepatic enzyme increased [Unknown]

NARRATIVE: CASE EVENT DATE: 201706
